FAERS Safety Report 4775077-4 (Version None)
Quarter: 2005Q3

REPORT INFORMATION
  Report Type: 
  Country: None (occurrence: None)
  Receive Date: 20050919
  Receipt Date: 20050831
  Transmission Date: 20060218
  Serious: Yes (Hospitalization)
  Sender: FDA-Public Use
  Company Number: WAES 0508PHL00003

PATIENT
  Age: 56 Year
  Sex: Male

DRUGS (9)
  1. COZAAR [Suspect]
     Indication: CARDIAC FAILURE CONGESTIVE
     Dosage: 1 TAB /QOD, PO
     Route: 048
     Dates: start: 20050401, end: 20050801
  2. ASPIRIN [Concomitant]
  3. BUTHIAZIDE (+) SPIRONOLACTONE [Concomitant]
  4. CARVEDILOL [Concomitant]
  5. CYANOCOABALAMIN (+) PYRIDOXINE (+) THIAMI [Concomitant]
  6. DIGOXIN [Concomitant]
  7. GLICLAZIDE [Concomitant]
  8. SIMVASTATIN [Concomitant]
  9. TRIMETAZIDINE HYDROCHLORIDE) [Concomitant]

REACTIONS (5)
  - ACUTE MYOCARDIAL INFARCTION [None]
  - CORONARY ARTERY DISEASE [None]
  - DECREASED APPETITE [None]
  - HAEMORRHAGIC STROKE [None]
  - OLIGURIA [None]
